FAERS Safety Report 6232314-7 (Version None)
Quarter: 2009Q2

REPORT INFORMATION
  Report Type: 
  Country: None (occurrence: None)
  Receive Date: 20090616
  Receipt Date: 20090616
  Transmission Date: 20091009
  Serious: No
  Sender: FDA-Public Use
  Company Number: None

PATIENT
  Sex: Female
  Weight: 117.9352 kg

DRUGS (2)
  1. ALLEGRA [Suspect]
     Dosage: 180MG PO
     Route: 048
     Dates: start: 20060101
  2. ALLEGRA [Suspect]
     Dosage: 180MG PO
     Route: 048
     Dates: start: 20070101

REACTIONS (1)
  - DRUG INEFFECTIVE [None]
